FAERS Safety Report 5516205-2 (Version None)
Quarter: 2007Q4

REPORT INFORMATION
  Report Type: 
  Country: None (occurrence: None)
  Receive Date: 20071114
  Receipt Date: 20070109
  Transmission Date: 20080405
  Serious: No
  Sender: FDA-Public Use
  Company Number: A0634661A

PATIENT
  Age: 60 Year
  Sex: Female

DRUGS (6)
  1. COMMIT [Suspect]
  2. COMMIT [Suspect]
     Dates: start: 20070106, end: 20070106
  3. NICORETTE [Suspect]
  4. MORPHINE [Concomitant]
  5. PERCODAN [Concomitant]
  6. PAXIL [Concomitant]

REACTIONS (4)
  - DIZZINESS [None]
  - EUPHORIC MOOD [None]
  - INTENTIONAL DRUG MISUSE [None]
  - NICOTINE DEPENDENCE [None]
